FAERS Safety Report 4409370-1 (Version None)
Quarter: 2004Q3

REPORT INFORMATION
  Report Type: 
  Country: None (occurrence: None)
  Receive Date: 20040727
  Receipt Date: 20040727
  Transmission Date: 20050211
  Serious: Yes (Other)
  Sender: FDA-Public Use
  Company Number: None

PATIENT
  Age: 62 Year
  Sex: Male
  Weight: 104.3273 kg

DRUGS (2)
  1. VICODIN [Suspect]
  2. VYTORIN [Suspect]

REACTIONS (1)
  - MEDICATION ERROR [None]
